FAERS Safety Report 8477716-3 (Version None)
Quarter: 2012Q2

REPORT INFORMATION
  Report Type: 
  Country: None (occurrence: None)
  Receive Date: 20120626
  Receipt Date: 20120626
  Transmission Date: 20120825
  Serious: Yes (Hospitalization)
  Sender: FDA-Public Use
  Company Number: None

PATIENT
  Age: 32 Year
  Sex: Male
  Weight: 80.8 kg

DRUGS (2)
  1. HALOPERIDOL [Suspect]
     Indication: BIPOLAR I DISORDER
     Dosage: 2 MG BID PO
     Route: 048
     Dates: start: 20120125, end: 20120130
  2. HALOPERIDOL [Suspect]
     Indication: AGITATION
     Dosage: 2 MG BID PO
     Route: 048
     Dates: start: 20120125, end: 20120130

REACTIONS (4)
  - DYSTONIA [None]
  - ANGIOEDEMA [None]
  - SPEECH DISORDER [None]
  - MYALGIA [None]
